FAERS Safety Report 8261900-8 (Version None)
Quarter: 2012Q2

REPORT INFORMATION
  Report Type: 
  Country: None (occurrence: None)
  Receive Date: 20120402
  Receipt Date: 20120323
  Transmission Date: 20120825
  Serious: Yes (Hospitalization, Other)
  Sender: FDA-Public Use
  Company Number: 2012SP016495

PATIENT
  Age: 70 Year
  Sex: Male

DRUGS (4)
  1. AMLODIPINE [Suspect]
     Indication: PRODUCT USED FOR UNKNOWN INDICATION
     Dosage: 50 MG;PO
     Route: 048
     Dates: start: 20110701, end: 20110701
  2. REMERON [Suspect]
     Indication: PRODUCT USED FOR UNKNOWN INDICATION
     Dosage: PO
     Route: 048
     Dates: start: 20110701, end: 20110701
  3. METOPROLOL TARTRATE [Suspect]
     Indication: PRODUCT USED FOR UNKNOWN INDICATION
     Dosage: 500 MG;ONCE;PO
     Route: 048
     Dates: start: 20110701, end: 20110701
  4. VENLAFAXINE [Suspect]
     Indication: PRODUCT USED FOR UNKNOWN INDICATION
     Dosage: PO
     Route: 048
     Dates: start: 20110701, end: 20110701

REACTIONS (5)
  - BLOOD PRESSURE SYSTOLIC DECREASED [None]
  - TOXICITY TO VARIOUS AGENTS [None]
  - SUICIDE ATTEMPT [None]
  - PNEUMONIA ASPIRATION [None]
  - BRADYCARDIA [None]
